FAERS Safety Report 8135445-X (Version None)
Quarter: 2012Q1

REPORT INFORMATION
  Report Type: 
  Country: None (occurrence: None)
  Receive Date: 20120209
  Receipt Date: 20120202
  Transmission Date: 20120608
  Serious: Yes (Other)
  Sender: FDA-Public Use
  Company Number: 2011SP016575

PATIENT
  Age: 37 Year
  Sex: Female
  Weight: 68.0396 kg

DRUGS (1)
  1. NUVARING [Suspect]
     Indication: CONTRACEPTION
     Dates: start: 20030301, end: 20090522

REACTIONS (39)
  - UTERINE LEIOMYOMA [None]
  - MENORRHAGIA [None]
  - VIRAL UPPER RESPIRATORY TRACT INFECTION [None]
  - GASTROOESOPHAGEAL REFLUX DISEASE [None]
  - RHINORRHOEA [None]
  - VISUAL IMPAIRMENT [None]
  - ACUTE SINUSITIS [None]
  - CONSTIPATION [None]
  - RASH [None]
  - LIBIDO DECREASED [None]
  - FATIGUE [None]
  - DYSFUNCTIONAL UTERINE BLEEDING [None]
  - NASOPHARYNGITIS [None]
  - VULVOVAGINAL DRYNESS [None]
  - INCORRECT DOSE ADMINISTERED [None]
  - PULMONARY EMBOLISM [None]
  - VARICOSE VEIN [None]
  - ENDOMETRIAL HYPERPLASIA [None]
  - VITAMIN B12 DEFICIENCY [None]
  - ARTHRALGIA [None]
  - TREATMENT NONCOMPLIANCE [None]
  - VOMITING [None]
  - IMPAIRED WORK ABILITY [None]
  - ASTHMA [None]
  - CARDIAC MURMUR [None]
  - ARTHROPOD BITE [None]
  - HEADACHE [None]
  - NAUSEA [None]
  - VAGINAL DISCHARGE [None]
  - MOOD SWINGS [None]
  - DEEP VEIN THROMBOSIS [None]
  - BRONCHOPNEUMONIA [None]
  - MUSCLE SPASMS [None]
  - POST PROCEDURAL COMPLICATION [None]
  - DIARRHOEA [None]
  - COUGH [None]
  - PERNICIOUS ANAEMIA [None]
  - PERIARTHRITIS [None]
  - ALOPECIA [None]
